FAERS Safety Report 7376721-8 (Version None)
Quarter: 2011Q1

REPORT INFORMATION
  Report Type: 
  Country: None (occurrence: None)
  Receive Date: 20110325
  Receipt Date: 20110317
  Transmission Date: 20110831
  Serious: Yes (Other)
  Sender: FDA-Public Use
  Company Number: GB-GENENTECH-315505

PATIENT
  Age: 32 Year
  Sex: Female

DRUGS (1)
  1. TENECTEPLASE [Suspect]
     Indication: PULMONARY EMBOLISM
     Dosage: 10000 UNIT, UNK

REACTIONS (1)
  - PERIORBITAL HAEMATOMA [None]
